FAERS Safety Report 7932898-4 (Version None)
Quarter: 2011Q4

REPORT INFORMATION
  Report Type: 
  Country: None (occurrence: None)
  Receive Date: 20111122
  Receipt Date: 20111117
  Transmission Date: 20120403
  Serious: Yes (Hospitalization, Other)
  Sender: FDA-Public Use
  Company Number: US-ASTELLAS-2011US007669

PATIENT
  Sex: Male

DRUGS (1)
  1. ERLOTINIB HYDROCHLORIDE [Suspect]
     Indication: PRODUCT USED FOR UNKNOWN INDICATION
     Dosage: 150 MG, UNKNOWN/D
     Route: 048
     Dates: start: 20111001, end: 20111101

REACTIONS (3)
  - PYREXIA [None]
  - ANAPHYLACTIC SHOCK [None]
  - COMA [None]
